FAERS Safety Report 14569503 (Version 4)
Quarter: 2018Q3

REPORT INFORMATION
  Report Type: Other
  Country: DE (occurrence: DE)
  Receive Date: 20180224
  Receipt Date: 20180719
  Transmission Date: 20181010
  Serious: Yes (Other)
  Sender: FDA-Public Use
  Company Number: DE-MACLEODS PHARMACEUTICALS US LTD-MAC2018010215

PATIENT

DRUGS (13)
  1. ASPIRIN. [Interacting]
     Active Substance: ASPIRIN
     Indication: PRODUCT USED FOR UNKNOWN INDICATION
     Dosage: 1 DF, QD, (ONE TABLET DAILY IN THE MORNING)
     Route: 048
  2. PANTOPRAZOLE TABLET [Suspect]
     Active Substance: PANTOPRAZOLE
     Indication: PRODUCT USED FOR UNKNOWN INDICATION
     Dosage: 40 MG, BID, (ONE TABLET IN THE MORNING AND ONE TABLET AT NIGHT FOR 2 WEEKS)
     Route: 048
  3. L?THYROXINE SODIUM [Interacting]
     Active Substance: LEVOTHYROXINE SODIUM
     Indication: PRODUCT USED FOR UNKNOWN INDICATION
     Dosage: 50 ?G, QD (ONE TABLET DAILY IN THE MORNING)
     Route: 048
  4. SPIRONOLACTONE HEXAL [Interacting]
     Active Substance: SPIRONOLACTONE
     Indication: PRODUCT USED FOR UNKNOWN INDICATION
     Dosage: 50 MG, QD (ONE TABLET DAILY IN THE MORNING)
     Route: 048
  5. SPIRONOLACTONE HEXAL [Interacting]
     Active Substance: SPIRONOLACTONE
     Dosage: 6 MG, QD
     Route: 048
  6. PANTOPRAZOLE TABLET [Interacting]
     Active Substance: PANTOPRAZOLE
     Dosage: 80 MG, QD (40 MG BID, ONE TABLET IN THE MORNING AND ONE TABLET AT NIGHT FOR 2 WEEKS)
     Route: 065
  7. BISOPROLOL [Interacting]
     Active Substance: BISOPROLOL
     Indication: PRODUCT USED FOR UNKNOWN INDICATION
     Dosage: 1 DF, QD (ONE TABLET DAILY IN THE MORNING)
     Route: 048
  8. GLIMEPIRID [Interacting]
     Active Substance: GLIMEPIRIDE
     Indication: PRODUCT USED FOR UNKNOWN INDICATION
     Dosage: 6 MG, QD, (ONE TABLET DAILY IN THE MORNING )
     Route: 048
  9. SPIRIVA [Suspect]
     Active Substance: TIOTROPIUM BROMIDE MONOHYDRATE
     Indication: PRODUCT USED FOR UNKNOWN INDICATION
     Dosage: 2.5 MICROGRAM, PRN, 1 AS NECESSARY (AS NEEDED) (INHALATION POWDER), HARD CAPSULE
     Route: 065
  10. SIMVA [Interacting]
     Active Substance: SIMVASTATIN
     Indication: PRODUCT USED FOR UNKNOWN INDICATION
     Dosage: 20 MG, QD (ONE TABLET DAILY IN THE MORNING)
     Route: 048
  11. FORADIL [Interacting]
     Active Substance: FORMOTEROL FUMARATE
     Indication: PRODUCT USED FOR UNKNOWN INDICATION
     Dosage: 12 MICROGRAM, PRN, 1 AS NECESSARY
     Route: 065
  12. MIFLONIDE [Interacting]
     Active Substance: BUDESONIDE
     Indication: PRODUCT USED FOR UNKNOWN INDICATION
     Dosage: 400 ?G, 1 AS NEEDED
     Route: 065
  13. CANDESARTAN/HYDROCHLOROTHIAZIDE [Interacting]
     Active Substance: CANDESARTAN CILEXETIL\HYDROCHLOROTHIAZIDE
     Indication: PRODUCT USED FOR UNKNOWN INDICATION
     Dosage: 1 DF, QD (16MG/12.5 MG, ONE TABLET DAILY AT NIGHT)
     Route: 048

REACTIONS (2)
  - Blood glucose increased [Unknown]
  - Drug interaction [Unknown]
